FAERS Safety Report 7280952-5 (Version None)
Quarter: 2011Q1

REPORT INFORMATION
  Report Type: 
  Country: None (occurrence: None)
  Receive Date: 20110208
  Receipt Date: 20110127
  Transmission Date: 20110831
  Serious: Yes (Hospitalization)
  Sender: FDA-Public Use
  Company Number: RU-KINGPHARMUSA00001-K201100119

PATIENT
  Age: 27 Year
  Sex: Male
  Weight: 65 kg

DRUGS (3)
  1. RIMANTADINE HYDROCHLORIDE [Suspect]
     Indication: VIRAL INFECTION
     Dosage: 2 TABLETS, TID
     Route: 048
     Dates: start: 20071209, end: 20071211
  2. SEPTRA [Suspect]
     Indication: VIRAL INFECTION
     Dosage: 2 TABLETS, TID
     Route: 048
     Dates: start: 20071209, end: 20071211
  3. PARACETAMOL [Concomitant]
     Indication: VIRAL INFECTION
     Dosage: 0.5 G, PRN
     Route: 048
     Dates: start: 20071209

REACTIONS (6)
  - PLATELET COUNT DECREASED [None]
  - PETECHIAE [None]
  - CONJUNCTIVAL HAEMORRHAGE [None]
  - PERIORBITAL HAEMATOMA [None]
  - THROMBOCYTOPENIC PURPURA [None]
  - PURPURA [None]
